FAERS Safety Report 8683151 (Version 2)
Quarter: 2012Q4

REPORT INFORMATION
  Report Type: 
  Country: US (occurrence: US)
  Receive Date: 20120726
  Receipt Date: 20120903
  Transmission Date: 20130627
  Serious: No
  Sender: FDA-Public Use
  Company Number: US-009507513-1207USA008469

PATIENT

DRUGS (1)
  1. NUVARING [Suspect]
     Dosage: UNK, qm
     Route: 067
     Dates: start: 201202

REACTIONS (2)
  - Incorrect drug administration duration [Unknown]
  - Inappropriate schedule of drug administration [Not Recovered/Not Resolved]
